FAERS Safety Report 19134548 (Version 1)
Quarter: 2021Q2

REPORT INFORMATION
  Report Type: Spontaneous
  Country: US (occurrence: US)
  Receive Date: 20210414
  Receipt Date: 20210414
  Transmission Date: 20210717
  Serious: No
  Sender: FDA-Public Use
  Company Number: None

PATIENT
  Age: 80 Year
  Sex: Female
  Weight: 83.25 kg

DRUGS (8)
  1. VIT D [Concomitant]
     Active Substance: VITAMIN D NOS
  2. IBRANCE [Concomitant]
     Active Substance: PALBOCICLIB
  3. LETRAZOLE [Concomitant]
     Active Substance: LETROZOLE
  4. HYDROCHLORTHIAZIDE [Concomitant]
     Active Substance: HYDROCHLOROTHIAZIDE
  5. ZOMETA [Suspect]
     Active Substance: ZOLEDRONIC ACID
     Indication: BREAST CANCER
  6. VIT B [Concomitant]
     Active Substance: VITAMIN B
  7. ZINC. [Concomitant]
     Active Substance: ZINC
  8. THYROXINE [Concomitant]
     Active Substance: LEVOTHYROXINE

REACTIONS (7)
  - Bone pain [None]
  - Myalgia [None]
  - Headache [None]
  - Fatigue [None]
  - Muscular weakness [None]
  - Nausea [None]
  - Cough [None]

NARRATIVE: CASE EVENT DATE: 20210409
